APPROVED DRUG PRODUCT: LERITINE
Active Ingredient: ANILERIDINE HYDROCHLORIDE
Strength: EQ 25MG BASE
Dosage Form/Route: TABLET;ORAL
Application: N010585 | Product #002
Applicant: MERCK AND CO INC
Approved: Approved Prior to Jan 1, 1982 | RLD: No | RS: No | Type: DISCN